FAERS Safety Report 5988942-7 (Version None)
Quarter: 2008Q4

REPORT INFORMATION
  Report Type: 
  Country: None (occurrence: None)
  Receive Date: 20081209
  Receipt Date: 20081209
  Transmission Date: 20090506
  Serious: Yes (Hospitalization)
  Sender: FDA-Public Use
  Company Number: None

PATIENT
  Age: 46 Year
  Sex: Male
  Weight: 71.2 kg

DRUGS (5)
  1. REVLIMID [Suspect]
  2. VELCADE [Suspect]
  3. ASPIRIN [Concomitant]
  4. DEXAMETHASONE [Concomitant]
  5. DOXIL [Concomitant]

REACTIONS (5)
  - ANAEMIA [None]
  - BLOOD CALCIUM INCREASED [None]
  - BLOOD CREATININE INCREASED [None]
  - HAEMOPTYSIS [None]
  - PYREXIA [None]
